FAERS Safety Report 10331118 (Version 1)
Quarter: 2014Q3

REPORT INFORMATION
  Report Type: Spontaneous
  Country: CA (occurrence: CA)
  Receive Date: 20140722
  Receipt Date: 20140722
  Transmission Date: 20150326
  Serious: Yes (Other)
  Sender: FDA-Public Use
  Company Number: 2014SP002264

PATIENT
  Age: 62 Year
  Sex: Female

DRUGS (14)
  1. CALCIUM [Concomitant]
     Active Substance: CALCIUM
  2. TYLENOL [Concomitant]
     Active Substance: ACETAMINOPHEN
  3. VITAMIN D [Concomitant]
     Active Substance: CHOLECALCIFEROL
  4. LATUDA [Suspect]
     Active Substance: LURASIDONE HYDROCHLORIDE
     Route: 048
  5. CLONAZEPAM. [Concomitant]
     Active Substance: CLONAZEPAM
  6. WARFARIN [Concomitant]
     Active Substance: WARFARIN
  7. SALBUTAMOL [Concomitant]
     Active Substance: ALBUTEROL
  8. ATENOLOL. [Concomitant]
     Active Substance: ATENOLOL
  9. HYDROMORPHONE [Concomitant]
     Active Substance: HYDROMORPHONE
  10. LATUDA [Suspect]
     Active Substance: LURASIDONE HYDROCHLORIDE
     Route: 048
  11. DIVALPROIC ACID [Concomitant]
  12. QUETIAPINE [Concomitant]
     Active Substance: QUETIAPINE
  13. SYMBICORT [Concomitant]
     Active Substance: BUDESONIDE\FORMOTEROL FUMARATE DIHYDRATE
  14. TIOTROPIUM [Concomitant]
     Active Substance: TIOTROPIUM

REACTIONS (1)
  - Neutropenia [Unknown]
